FAERS Safety Report 11054740 (Version 1)
Quarter: 2015Q2

REPORT INFORMATION
  Report Type: Spontaneous
  Country: BR (occurrence: BR)
  Receive Date: 20150422
  Receipt Date: 20150422
  Transmission Date: 20150821
  Serious: Yes (Hospitalization, Other)
  Sender: FDA-Public Use
  Company Number: BR-ROCHE-1562925

PATIENT
  Age: 61 Year
  Sex: Female

DRUGS (10)
  1. CLONAZEPAM. [Suspect]
     Active Substance: CLONAZEPAM
     Indication: SCHIZOPHRENIA
  2. GEODON [Interacting]
     Active Substance: ZIPRASIDONE HYDROCHLORIDE\ZIPRASIDONE MESYLATE
     Route: 065
     Dates: start: 201502
  3. RIVOTRIL [Interacting]
     Active Substance: CLONAZEPAM
     Indication: TENSION
     Route: 065
     Dates: start: 201501, end: 20150326
  4. GEODON [Interacting]
     Active Substance: ZIPRASIDONE HYDROCHLORIDE\ZIPRASIDONE MESYLATE
     Indication: SCHIZOPHRENIA
     Route: 065
     Dates: start: 2014, end: 201502
  5. CARBOLITHIUM [Concomitant]
     Active Substance: LITHIUM CARBONATE
     Indication: SCHIZOPHRENIA
     Route: 065
     Dates: start: 2005
  6. ZEPHREX-D [Suspect]
     Active Substance: PSEUDOEPHEDRINE HYDROCHLORIDE
     Indication: SCHIZOPHRENIA
     Route: 065
  7. CARBOLITHIUM [Concomitant]
     Active Substance: LITHIUM CARBONATE
     Indication: BIPOLAR DISORDER
  8. ARADOIS [Suspect]
     Active Substance: LOSARTAN POTASSIUM
     Indication: HYPERTENSION
     Route: 065
     Dates: start: 2005, end: 2014
  9. CLONAZEPAM. [Suspect]
     Active Substance: CLONAZEPAM
     Indication: BIPOLAR DISORDER
     Dosage: 2.5 MG/ML
     Route: 065
     Dates: start: 2005
  10. GLIFAGE [Concomitant]
     Active Substance: METFORMIN HYDROCHLORIDE
     Indication: DIABETES MELLITUS
     Route: 065
     Dates: start: 2005

REACTIONS (18)
  - Blood pressure decreased [Unknown]
  - Uterine leiomyoma [Unknown]
  - Asthenia [Recovering/Resolving]
  - Constipation [Not Recovered/Not Resolved]
  - Weight increased [Unknown]
  - Abdominal distension [Not Recovered/Not Resolved]
  - Tremor [Unknown]
  - Hypothermia [Recovered/Resolved]
  - Malaise [Not Recovered/Not Resolved]
  - Fear of death [Not Recovered/Not Resolved]
  - Feeling abnormal [Unknown]
  - Sense of oppression [Unknown]
  - Tension [Unknown]
  - Hypothyroidism [Not Recovered/Not Resolved]
  - Weight decreased [Unknown]
  - Hallucination [Unknown]
  - Fear [Unknown]
  - Drug interaction [Unknown]

NARRATIVE: CASE EVENT DATE: 2014
